FAERS Safety Report 6510022-2 (Version None)
Quarter: 2009Q4

REPORT INFORMATION
  Report Type: 
  Country: None (occurrence: None)
  Receive Date: 20091222
  Receipt Date: 20091215
  Transmission Date: 20100525
  Serious: Yes (Life-Threatening, Other)
  Sender: FDA-Public Use
  Company Number: US-NAPPMUNDI-GBR-2009-0005964

PATIENT
  Age: 38 Year
  Sex: Female

DRUGS (4)
  1. HYDROMORPHONE HCL [Suspect]
     Indication: OCCIPITAL NEURALGIA
     Route: 042
  2. HYDROMORPHONE HCL [Suspect]
     Indication: MYALGIA
  3. KETOROLAC TROMETHAMINE [Suspect]
     Indication: OCCIPITAL NEURALGIA
  4. KETOROLAC TROMETHAMINE [Suspect]
     Indication: MYALGIA

REACTIONS (7)
  - EAR PAIN [None]
  - NECK PAIN [None]
  - OSTEOMYELITIS [None]
  - PHOTOPHOBIA [None]
  - PYREXIA [None]
  - TENDERNESS [None]
  - THROMBOSIS [None]
